FAERS Safety Report 20662992 (Version 1)
Quarter: 2022Q1

REPORT INFORMATION
  Report Type: Spontaneous
  Country: US (occurrence: None)
  Receive Date: 20220331
  Receipt Date: 20220331
  Transmission Date: 20220423
  Serious: Yes (Hospitalization)
  Sender: FDA-Public Use
  Company Number: None

PATIENT
  Age: 12 Year
  Sex: Female

DRUGS (1)
  1. ABATACEPT [Suspect]
     Active Substance: ABATACEPT
     Indication: Prophylaxis against graft versus host disease
     Dates: start: 20220127

REACTIONS (5)
  - Failure to thrive [None]
  - Decreased appetite [None]
  - Dehydration [None]
  - Weight decreased [None]
  - Graft versus host disease in gastrointestinal tract [None]

NARRATIVE: CASE EVENT DATE: 20220325
